FAERS Safety Report 17301487 (Version 1)
Quarter: 2020Q1

REPORT INFORMATION
  Report Type: Spontaneous
  Country: US (occurrence: US)
  Receive Date: 20200106
  Receipt Date: 20200106
  Transmission Date: 20200409
  Serious: No
  Sender: FDA-Public Use
  Company Number: None

PATIENT
  Age: 81 Year
  Sex: Female
  Weight: 89.81 kg

DRUGS (3)
  1. ZYTIGA [Suspect]
     Active Substance: ABIRATERONE ACETATE
     Indication: ANAEMIA
     Dosage: TAKE 2 TABLETS BY MOUTH DAILY ON EMPTY STOMACH 1 HOUR BEFOR OR 2 HOURS AFTER AMEAL AS DIRECTED
     Route: 048
     Dates: start: 201906
  2. ZYTIGA [Suspect]
     Active Substance: ABIRATERONE ACETATE
     Indication: NEOPLASM MALIGNANT
     Dosage: TAKE 2 TABLETS BY MOUTH DAILY ON EMPTY STOMACH 1 HOUR BEFOR OR 2 HOURS AFTER AMEAL AS DIRECTED
     Route: 048
     Dates: start: 201906
  3. ZYTIGA [Suspect]
     Active Substance: ABIRATERONE ACETATE
     Indication: IRON DEFICIENCY ANAEMIA
     Dosage: TAKE 2 TABLETS BY MOUTH DAILY ON EMPTY STOMACH 1 HOUR BEFOR OR 2 HOURS AFTER AMEAL AS DIRECTED
     Route: 048
     Dates: start: 201906

REACTIONS (1)
  - Gastrointestinal haemorrhage [None]
